FAERS Safety Report 6103157-X (Version None)
Quarter: 2009Q1

REPORT INFORMATION
  Report Type: 
  Country: None (occurrence: None)
  Receive Date: 20090305
  Receipt Date: 20090226
  Transmission Date: 20090719
  Serious: Yes (Other)
  Sender: FDA-Public Use
  Company Number: US-PFIZER INC-2009160931

PATIENT
  Sex: Male

DRUGS (2)
  1. CELEBREX [Suspect]
     Indication: PAIN MANAGEMENT
     Dosage: UNK
  2. BEXTRA [Suspect]
     Indication: PAIN MANAGEMENT

REACTIONS (1)
  - CEREBROVASCULAR ACCIDENT [None]
